FAERS Safety Report 7088169-4 (Version None)
Quarter: 2010Q4

REPORT INFORMATION
  Report Type: 
  Country: None (occurrence: None)
  Receive Date: 20101108
  Receipt Date: 20100622
  Transmission Date: 20110411
  Serious: Yes (Hospitalization)
  Sender: FDA-Public Use
  Company Number: FR-SANOFI-AVENTIS-2009SA006310

PATIENT
  Age: 71 Year
  Sex: Female
  Weight: 51 kg

DRUGS (11)
  1. AFLIBERCEPT [Suspect]
     Indication: LUNG ADENOCARCINOMA
     Route: 042
     Dates: start: 20090121, end: 20090121
  2. AFLIBERCEPT [Suspect]
     Route: 042
     Dates: start: 20091019, end: 20091019
  3. DOCETAXEL [Suspect]
     Indication: LUNG ADENOCARCINOMA
     Route: 042
     Dates: start: 20090121, end: 20090121
  4. DOCETAXEL [Suspect]
     Route: 042
     Dates: start: 20091019, end: 20091019
  5. LOGIRENE [Suspect]
     Route: 048
     Dates: start: 20091123, end: 20091202
  6. NEXIUM [Concomitant]
     Indication: PROPHYLAXIS
     Route: 048
     Dates: start: 20090101
  7. NORSET [Concomitant]
     Indication: ANXIETY
     Route: 048
     Dates: start: 20091001
  8. TRIATEC [Concomitant]
     Route: 048
     Dates: start: 20091009
  9. FORTIMEL [Concomitant]
     Route: 048
     Dates: start: 20091001
  10. ACETAMINOPHEN W/ PROPOXYPHENE HCL [Concomitant]
     Route: 048
     Dates: start: 20090101
  11. DOLIPRANE [Concomitant]
     Dates: start: 20090318

REACTIONS (5)
  - DECREASED APPETITE [None]
  - DYSURIA [None]
  - HYPONATRAEMIA [None]
  - PROTEINURIA [None]
  - URINARY TRACT INFECTION [None]
